FAERS Safety Report 4941507-8 (Version None)
Quarter: 2006Q1

REPORT INFORMATION
  Report Type: 
  Country: None (occurrence: None)
  Receive Date: 20060310
  Receipt Date: 20060310
  Transmission Date: 20060701
  Serious: No
  Sender: FDA-Public Use
  Company Number: None

PATIENT
  Age: 73 Year
  Sex: Female
  Weight: 55.7924 kg

DRUGS (1)
  1. ACTONEL [Suspect]
     Indication: OSTEOPOROSIS
     Dosage: 35MG PO WEEKLY
     Route: 048
     Dates: start: 20051001, end: 20051101

REACTIONS (2)
  - FLATULENCE [None]
  - STOMACH DISCOMFORT [None]
